FAERS Safety Report 16989820 (Version 1)
Quarter: 2019Q4

REPORT INFORMATION
  Report Type: Spontaneous
  Country: US (occurrence: US)
  Receive Date: 20190919
  Receipt Date: 20190919
  Transmission Date: 20200122
  Serious: No
  Sender: FDA-Public Use
  Company Number: None

PATIENT
  Age: 67 Year
  Sex: Female
  Weight: 24.4 kg

DRUGS (1)
  1. LEVOTHYROXINE 50MCG [Suspect]
     Active Substance: LEVOTHYROXINE
     Indication: HYPOTHYROIDISM
     Dosage: ?          OTHER FREQUENCY:7;?
     Route: 048
     Dates: start: 20170831

REACTIONS (1)
  - Hypersensitivity [None]
